FAERS Safety Report 23322766 (Version 1)
Quarter: 2023Q4

REPORT INFORMATION
  Report Type: Spontaneous
  Country: FR (occurrence: FR)
  Receive Date: 20231220
  Receipt Date: 20231220
  Transmission Date: 20240109
  Serious: Yes (Life-Threatening, Other)
  Sender: FDA-Public Use
  Company Number: None

PATIENT
  Age: 58 Year
  Sex: Male
  Weight: 98 kg

DRUGS (6)
  1. KEYTRUDA [Suspect]
     Active Substance: PEMBROLIZUMAB
     Indication: Malignant melanoma
     Dosage: UNSPECIFIED
     Route: 042
     Dates: start: 202309
  2. ACETAMINOPHEN\OPIUM [Concomitant]
     Active Substance: ACETAMINOPHEN\OPIUM
     Dosage: UNK
  3. KARDEGIC [Concomitant]
     Active Substance: ASPIRIN DL-LYSINE
     Dosage: POWDER FOR ORAL SOLUTION IN SINGLE DOSE SACHET
  4. RABEPRAZOLE SODIUM [Concomitant]
     Active Substance: RABEPRAZOLE SODIUM
  5. HYDROXYZINE HYDROCHLORIDE [Concomitant]
     Active Substance: HYDROXYZINE HYDROCHLORIDE
  6. ATORVASTATIN [Concomitant]
     Active Substance: ATORVASTATIN

REACTIONS (3)
  - Neutrophil count increased [Not Recovered/Not Resolved]
  - Hyperleukocytosis [Not Recovered/Not Resolved]
  - Respiratory distress [Not Recovered/Not Resolved]

NARRATIVE: CASE EVENT DATE: 20231026
